FAERS Safety Report 4317430-9 (Version None)
Quarter: 2004Q1

REPORT INFORMATION
  Report Type: 
  Country: None (occurrence: None)
  Receive Date: 20040312
  Receipt Date: 20040301
  Transmission Date: 20041129
  Serious: Yes (Hospitalization)
  Sender: FDA-Public Use
  Company Number: 2001CG01455

PATIENT
  Age: 1 Day
  Sex: Female

DRUGS (1)
  1. ZOLTUM [Suspect]

REACTIONS (3)
  - CONVULSION NEONATAL [None]
  - GRAND MAL CONVULSION [None]
  - MATERNAL DRUGS AFFECTING FOETUS [None]
